FAERS Safety Report 12555245 (Version 1)
Quarter: 2016Q3

REPORT INFORMATION
  Report Type: Report from Study
  Country: AU (occurrence: AU)
  Receive Date: 20160714
  Receipt Date: 20160714
  Transmission Date: 20161109
  Serious: Yes (Other)
  Sender: FDA-Public Use
  Company Number: AU-BAUSCH-BL-2016-016352

PATIENT
  Sex: Male

DRUGS (3)
  1. VISUDYNE [Suspect]
     Active Substance: VERTEPORFIN
     Indication: CHORIORETINOPATHY
  2. VISUDYNE [Suspect]
     Active Substance: VERTEPORFIN
     Indication: MACULAR DETACHMENT
     Route: 065
     Dates: start: 2012
  3. VISUDYNE [Suspect]
     Active Substance: VERTEPORFIN
     Indication: VISUAL ACUITY REDUCED

REACTIONS (2)
  - Product use issue [Unknown]
  - Chorioretinopathy [Unknown]
